FAERS Safety Report 22814741 (Version 2)
Quarter: 2024Q2

REPORT INFORMATION
  Report Type: Report from Study
  Country: IL (occurrence: IL)
  Receive Date: 20230811
  Receipt Date: 20240621
  Transmission Date: 20240716
  Serious: Yes (Death)
  Sender: FDA-Public Use
  Company Number: IL-Merck Healthcare KGaA-2023467012

PATIENT
  Age: 90 Year
  Sex: Female
  Weight: 50 kg

DRUGS (1)
  1. TEPOTINIB [Suspect]
     Active Substance: TEPOTINIB
     Indication: Non-small cell lung cancer

REACTIONS (1)
  - Death [Fatal]

NARRATIVE: CASE EVENT DATE: 20230524
